FAERS Safety Report 11446513 (Version 1)
Quarter: 2015Q3

REPORT INFORMATION
  Report Type: Spontaneous
  Country: US (occurrence: US)
  Receive Date: 20150831
  Receipt Date: 20150831
  Transmission Date: 20151125
  Serious: No
  Sender: FDA-Public Use
  Company Number: US-ELI_LILLY_AND_COMPANY-US200901003247

PATIENT
  Age: 49 Year
  Sex: Female
  Weight: 165 kg

DRUGS (7)
  1. ATENOLOL. [Concomitant]
     Active Substance: ATENOLOL
     Dosage: 25 MG, UNK
  2. ESCITALOPRAM OXALATE. [Concomitant]
     Active Substance: ESCITALOPRAM OXALATE
     Indication: DEPRESSION
     Dosage: 20 MG, UNK
  3. CYMBALTA [Suspect]
     Active Substance: DULOXETINE HYDROCHLORIDE
     Dosage: 60 MG, UNK
  4. SIMVASTATIN. [Concomitant]
     Active Substance: SIMVASTATIN
     Dosage: 20 MG, UNK
  5. RAMIPRIL. [Concomitant]
     Active Substance: RAMIPRIL
     Indication: HYPERTENSION
     Dosage: 5 MG, UNK
  6. PREGABALIN. [Concomitant]
     Active Substance: PREGABALIN
     Dosage: 225 MG, UNK
  7. XYREM [Concomitant]
     Active Substance: SODIUM OXYBATE
     Indication: FIBROMYALGIA
     Dosage: 4 G, UNK
     Dates: start: 20081124

REACTIONS (5)
  - Dyspepsia [Recovered/Resolved]
  - Peripheral swelling [Not Recovered/Not Resolved]
  - Blood pressure increased [Not Recovered/Not Resolved]
  - Abdominal distension [Not Recovered/Not Resolved]
  - Pain [Not Recovered/Not Resolved]

NARRATIVE: CASE EVENT DATE: 200811
